FAERS Safety Report 6765562-8 (Version None)
Quarter: 2010Q2

REPORT INFORMATION
  Report Type: 
  Country: None (occurrence: None)
  Receive Date: 20100611
  Receipt Date: 20100528
  Transmission Date: 20101027
  Serious: Yes (Other)
  Sender: FDA-Public Use
  Company Number: PHHY2010AT35134

PATIENT
  Age: 66 Year
  Sex: Female

DRUGS (3)
  1. FEMARA [Suspect]
     Indication: BREAST CANCER
     Dosage: UNK
     Dates: start: 20090901
  2. LASIX [Concomitant]
     Indication: DEHYDRATION
  3. ZOMETA [Concomitant]
     Dosage: UNK

REACTIONS (9)
  - ARTHRALGIA [None]
  - ASCITES [None]
  - BREAST PROSTHESIS IMPLANTATION [None]
  - CATARACT [None]
  - FLUID RETENTION [None]
  - MEDICAL DEVICE COMPLICATION [None]
  - MOANING [None]
  - OEDEMA PERIPHERAL [None]
  - WEIGHT INCREASED [None]
